FAERS Safety Report 7014280-X (Version None)
Quarter: 2010Q3

REPORT INFORMATION
  Report Type: 
  Country: None (occurrence: None)
  Receive Date: 20100924
  Receipt Date: 20100924
  Transmission Date: 20110219
  Serious: No
  Sender: FDA-Public Use
  Company Number: None

PATIENT
  Age: 14 Year
  Sex: Female
  Weight: 58.514 kg

DRUGS (1)
  1. MULTIHANCE [Suspect]
     Indication: NUCLEAR MAGNETIC RESONANCE IMAGING
     Dosage: 12 ML ONCE I.V. PUSH
     Route: 042
     Dates: start: 20100921

REACTIONS (4)
  - COMMUNICATION DISORDER [None]
  - DYSPNOEA [None]
  - ERYTHEMA [None]
  - SKIN DISCOLOURATION [None]
